FAERS Safety Report 18439155 (Version 8)
Quarter: 2021Q1

REPORT INFORMATION
  Report Type: Report from Study
  Country: BR (occurrence: BR)
  Receive Date: 20201028
  Receipt Date: 20210204
  Transmission Date: 20210419
  Serious: Yes (Death, Life-Threatening, Hospitalization, Other)
  Sender: FDA-Public Use
  Company Number: BR-GILEAD-2020-0500020

PATIENT
  Age: 54 Year
  Sex: Male
  Weight: 130 kg

DRUGS (71)
  1. ENOXAPARINA [Concomitant]
     Active Substance: ENOXAPARIN
     Indication: THROMBOSIS PROPHYLAXIS
     Dates: start: 20201003
  2. OXYGEN. [Concomitant]
     Active Substance: OXYGEN
     Dosage: 100 UNK
     Route: 007
     Dates: start: 20201023
  3. OXYGEN. [Concomitant]
     Active Substance: OXYGEN
     Dosage: 50 %
     Route: 007
     Dates: start: 20201020
  4. OXYGEN. [Concomitant]
     Active Substance: OXYGEN
     Dosage: 45 %
     Route: 007
     Dates: start: 20201015
  5. OXYGEN. [Concomitant]
     Active Substance: OXYGEN
     Dosage: 70 %
     Route: 007
     Dates: start: 20201010
  6. OXYGEN. [Concomitant]
     Active Substance: OXYGEN
     Dosage: 70 %
     Route: 007
     Dates: start: 20201011
  7. OXYGEN. [Concomitant]
     Active Substance: OXYGEN
     Dosage: 65 %
     Route: 007
     Dates: start: 20201019
  8. ROCURONIO [Concomitant]
     Active Substance: ROCURONIUM BROMIDE
     Dosage: 40 MG
     Dates: start: 20201015
  9. NORADRENALINE [NOREPINEPHRINE] [Concomitant]
     Active Substance: NOREPINEPHRINE
     Dosage: 20 ML
     Dates: start: 20201015
  10. REMDESIVIR. [Suspect]
     Active Substance: REMDESIVIR
     Indication: COVID-19 PNEUMONIA
     Dosage: 100 MG, QD
     Route: 042
     Dates: start: 20201002
  11. OXYGEN. [Concomitant]
     Active Substance: OXYGEN
     Dosage: 60 UNK
     Route: 007
     Dates: start: 20201002
  12. OXYGEN. [Concomitant]
     Active Substance: OXYGEN
     Dosage: 40 %
     Route: 007
     Dates: start: 20201008
  13. OXYGEN. [Concomitant]
     Active Substance: OXYGEN
     Dosage: 100 %
     Route: 007
     Dates: start: 20201026
  14. OXYGEN. [Concomitant]
     Active Substance: OXYGEN
     Dosage: 90 %
     Route: 007
     Dates: start: 20201023
  15. FENTANILA [Concomitant]
  16. DIPIRONE [Concomitant]
     Active Substance: METAMIZOLE SODIUM
     Dosage: 1000 MG
     Dates: start: 20201003
  17. METHYLPREDNISOLONE. [Concomitant]
     Active Substance: METHYLPREDNISOLONE
     Indication: PNEUMONIA VIRAL
     Dates: start: 20201003
  18. OXYGEN. [Concomitant]
     Active Substance: OXYGEN
     Dosage: 40 UNK
     Route: 007
     Dates: start: 20201013
  19. OXYGEN. [Concomitant]
     Active Substance: OXYGEN
     Dosage: 55 UNK
     Route: 007
     Dates: start: 20201017
  20. OXYGEN. [Concomitant]
     Active Substance: OXYGEN
     Dosage: 100 UNK
     Route: 007
     Dates: start: 20201025
  21. OXYGEN. [Concomitant]
     Active Substance: OXYGEN
     Dosage: 50 %
     Route: 007
     Dates: start: 20201020
  22. PLACEBO [Suspect]
     Active Substance: UNSPECIFIED INGREDIENT
     Dosage: UNK
     Route: 042
  23. OXYGEN. [Concomitant]
     Active Substance: OXYGEN
     Dosage: 50 UNK
     Route: 007
     Dates: start: 20201007
  24. OXYGEN. [Concomitant]
     Active Substance: OXYGEN
     Dosage: 60 UNK
     Route: 007
     Dates: start: 20201014
  25. OXYGEN. [Concomitant]
     Active Substance: OXYGEN
     Dosage: 70 %
     Dates: start: 20201002
  26. PLACEBO [Suspect]
     Active Substance: UNSPECIFIED INGREDIENT
     Dosage: 100 ML
     Route: 042
     Dates: start: 20201002
  27. OXYGEN. [Concomitant]
     Active Substance: OXYGEN
     Dosage: 60 UNK
     Route: 007
     Dates: start: 20201003
  28. OXYGEN. [Concomitant]
     Active Substance: OXYGEN
     Dosage: 70 UNK
     Route: 007
     Dates: start: 20201022
  29. OXYGEN. [Concomitant]
     Active Substance: OXYGEN
     Dosage: 100 %
     Route: 007
     Dates: start: 20201016
  30. OXYGEN. [Concomitant]
     Active Substance: OXYGEN
     Dosage: 15 L/MIN
     Route: 055
     Dates: start: 20201002
  31. OXYGEN. [Concomitant]
     Active Substance: OXYGEN
     Dosage: 70 %
     Route: 007
     Dates: start: 20201013
  32. AZITROMICINA [AZITHROMYCIN] [Concomitant]
     Indication: ANTIBIOTIC PROPHYLAXIS
     Dosage: 500 MG
     Dates: start: 20201003
  33. FENTANYL. [Concomitant]
     Active Substance: FENTANYL
     Dosage: 20 ML
     Dates: start: 20201015
  34. PLACEBO [Suspect]
     Active Substance: UNSPECIFIED INGREDIENT
     Dosage: UNK
     Route: 042
  35. CEFTRIAXONE. [Concomitant]
     Active Substance: CEFTRIAXONE
     Indication: ANTIBIOTIC PROPHYLAXIS
     Dates: start: 20201003
  36. AZITROMICINA [Concomitant]
     Active Substance: AZITHROMYCIN DIHYDRATE
     Indication: ANTIBIOTIC PROPHYLAXIS
     Dates: start: 20201003
  37. OXYGEN. [Concomitant]
     Active Substance: OXYGEN
     Dosage: 75 UNK
     Route: 007
     Dates: start: 20201025
  38. OXYGEN. [Concomitant]
     Active Substance: OXYGEN
     Dosage: 70 UNK
     Route: 007
     Dates: start: 20201002
  39. OXYGEN. [Concomitant]
     Active Substance: OXYGEN
     Dosage: 55 %
     Route: 007
     Dates: start: 20201008
  40. OXYGEN. [Concomitant]
     Active Substance: OXYGEN
     Dosage: 60 %
     Route: 007
     Dates: start: 20201016
  41. PLACEBO [Suspect]
     Active Substance: UNSPECIFIED INGREDIENT
     Indication: COVID-19 PNEUMONIA
     Dosage: UNK
     Route: 042
     Dates: start: 20201002
  42. OMEPRAZOLE. [Concomitant]
     Active Substance: OMEPRAZOLE
     Indication: PROPHYLAXIS AGAINST GASTROINTESTINAL ULCER
     Dates: start: 20201003
  43. DIPIRONE [Concomitant]
     Active Substance: METAMIZOLE SODIUM
     Dates: start: 20201003
  44. PRECEDEX [Concomitant]
     Active Substance: DEXMEDETOMIDINE HYDROCHLORIDE
     Indication: ANXIETY
     Dates: start: 20201003
  45. OXYGEN. [Concomitant]
     Active Substance: OXYGEN
     Dosage: 50 %
     Route: 007
     Dates: start: 20201004
  46. OXYGEN. [Concomitant]
     Active Substance: OXYGEN
     Dosage: 50 UNK
     Route: 007
     Dates: start: 20201015
  47. OXYGEN. [Concomitant]
     Active Substance: OXYGEN
     Dosage: 40 UNK
     Route: 007
     Dates: start: 20201009
  48. OXYGEN. [Concomitant]
     Active Substance: OXYGEN
     Dosage: 80 UNK
     Route: 007
     Dates: start: 20201021
  49. OXYGEN. [Concomitant]
     Active Substance: OXYGEN
     Dosage: 70 UNK
     Route: 007
     Dates: start: 20201005
  50. OXYGEN. [Concomitant]
     Active Substance: OXYGEN
     Dosage: 50 %
     Route: 007
     Dates: start: 20201006
  51. OXYGEN. [Concomitant]
     Active Substance: OXYGEN
     Dosage: 65 %
     Route: 007
     Dates: start: 20201018
  52. OXYGEN. [Concomitant]
     Active Substance: OXYGEN
     Dosage: 80 %
     Route: 007
     Dates: start: 20201021
  53. OXYGEN. [Concomitant]
     Active Substance: OXYGEN
     Dosage: 50 %
     Route: 007
     Dates: start: 20201006
  54. OXYGEN. [Concomitant]
     Active Substance: OXYGEN
     Dosage: 100 %
     Route: 007
     Dates: start: 20201024
  55. OXYGEN. [Concomitant]
     Active Substance: OXYGEN
     Dosage: 50 %
     Route: 007
     Dates: start: 20201005
  56. OXYGEN. [Concomitant]
     Active Substance: OXYGEN
     Dosage: 75 %
     Route: 007
     Dates: start: 20201004
  57. OXYGEN. [Concomitant]
     Active Substance: OXYGEN
     Dosage: 100 %
     Route: 007
     Dates: start: 20201022
  58. OXYGEN. [Concomitant]
     Active Substance: OXYGEN
     Dosage: 40 %
     Route: 007
     Dates: start: 20201009
  59. METOCLOPRAMIDE. [Concomitant]
     Active Substance: METOCLOPRAMIDE
     Indication: NAUSEA
     Dates: start: 20201003
  60. OXYGEN. [Concomitant]
     Active Substance: OXYGEN
     Dosage: 70 UNK
     Route: 007
     Dates: start: 20201012
  61. OXYGEN. [Concomitant]
     Active Substance: OXYGEN
     Dosage: 100 UNK
     Route: 007
     Dates: start: 20201024
  62. OXYGEN. [Concomitant]
     Active Substance: OXYGEN
     Dosage: 65 %
     Route: 007
     Dates: start: 20201019
  63. OXYGEN. [Concomitant]
     Active Substance: OXYGEN
     Dosage: 75 %
     Route: 007
     Dates: start: 20201010
  64. OXYGEN. [Concomitant]
     Active Substance: OXYGEN
     Dosage: 65 %
     Route: 007
     Dates: start: 20201018
  65. OXYGEN. [Concomitant]
     Active Substance: OXYGEN
     Dosage: 50 %
     Route: 007
     Dates: start: 20201011
  66. OXYGEN. [Concomitant]
     Active Substance: OXYGEN
     Dosage: 80 %
     Route: 007
     Dates: start: 20201017
  67. OXYGEN. [Concomitant]
     Active Substance: OXYGEN
     Dosage: 50 %
     Route: 007
     Dates: start: 20201007
  68. OXYGEN. [Concomitant]
     Active Substance: OXYGEN
     Dosage: 60 %
     Route: 007
     Dates: start: 20201014
  69. OXYGEN. [Concomitant]
     Active Substance: OXYGEN
     Dosage: 45 %
     Route: 007
     Dates: start: 20201012
  70. DORMONID [MIDAZOLAM] [Concomitant]
     Dosage: 100 MG
     Dates: start: 20201015
  71. DEXTROKETAMINE [Concomitant]
     Dates: start: 20201015

REACTIONS (7)
  - Pneumonia [Not Recovered/Not Resolved]
  - Urinary tract infection [Not Recovered/Not Resolved]
  - Acute kidney injury [Not Recovered/Not Resolved]
  - Hypernatraemia [Recovered/Resolved]
  - Pneumonia acinetobacter [Not Recovered/Not Resolved]
  - Alanine aminotransferase increased [Not Recovered/Not Resolved]
  - COVID-19 pneumonia [Fatal]

NARRATIVE: CASE EVENT DATE: 20201005
